FAERS Safety Report 8061554-X (Version None)
Quarter: 2012Q1

REPORT INFORMATION
  Report Type: 
  Country: None (occurrence: None)
  Receive Date: 20120121
  Receipt Date: 20120109
  Transmission Date: 20120608
  Serious: Yes (Hospitalization)
  Sender: FDA-Public Use
  Company Number: DE-ACCORD-012052

PATIENT
  Age: 60 Year
  Sex: Male

DRUGS (3)
  1. CISPLATIN [Suspect]
     Dosage: 10 CYCLES
  2. DOCETAXEL [Suspect]
     Dosage: 10 CYCLES
  3. FLUOROURACIL [Suspect]
     Dosage: 10 CYCLES

REACTIONS (3)
  - NAUSEA [None]
  - AORTIC ANEURYSM [None]
  - OFF LABEL USE [None]
